FAERS Safety Report 15238904 (Version 1)
Quarter: 2018Q4

REPORT INFORMATION
  Report Type: Spontaneous
  Country: US (occurrence: US)
  Receive Date: 20180803
  Receipt Date: 20180803
  Transmission Date: 20190204
  Serious: Yes (Hospitalization)
  Sender: FDA-Public Use
  Company Number: US-FRESENIUS KABI-FK201808459

PATIENT
  Age: 83 Year
  Sex: Male

DRUGS (10)
  1. OXALIPLATIN (MANUFACTURER UNKNOWN) [Suspect]
     Active Substance: OXALIPLATIN
     Indication: RECTAL CANCER STAGE IV
     Route: 065
  2. FLUOROURACIL. [Concomitant]
     Active Substance: FLUOROURACIL
     Indication: METASTASES TO LIVER
  3. LEUCOVORIN CALCIUM (MANUFACTURER UNKNOWN) [Suspect]
     Active Substance: LEUCOVORIN CALCIUM
     Indication: RECTAL CANCER STAGE IV
     Route: 065
  4. OXALIPLATIN (MANUFACTURER UNKNOWN) [Suspect]
     Active Substance: OXALIPLATIN
     Indication: METASTASES TO LIVER
  5. BEVACIZUMAB. [Concomitant]
     Active Substance: BEVACIZUMAB
     Indication: METASTASES TO LIVER
  6. PALONOSETRON (MANUFACTURER UNKNOWN) [Suspect]
     Active Substance: PALONOSETRON HYDROCHLORIDE
     Indication: RECTAL CANCER STAGE IV
     Route: 065
  7. FLUOROURACIL. [Concomitant]
     Active Substance: FLUOROURACIL
     Indication: RECTAL CANCER STAGE IV
     Route: 065
  8. LEUCOVORIN CALCIUM (MANUFACTURER UNKNOWN) [Suspect]
     Active Substance: LEUCOVORIN CALCIUM
     Indication: METASTASES TO LIVER
  9. BEVACIZUMAB. [Concomitant]
     Active Substance: BEVACIZUMAB
     Indication: RECTAL CANCER STAGE IV
     Route: 065
  10. PALONOSETRON (MANUFACTURER UNKNOWN) [Suspect]
     Active Substance: PALONOSETRON HYDROCHLORIDE
     Indication: METASTASES TO LIVER

REACTIONS (3)
  - Immune-mediated adverse reaction [Recovered/Resolved]
  - Anti-platelet antibody [Recovered/Resolved]
  - Thrombocytopenia [Recovered/Resolved]
